FAERS Safety Report 7636086-0 (Version None)
Quarter: 2011Q3

REPORT INFORMATION
  Report Type: 
  Country: None (occurrence: None)
  Receive Date: 20110726
  Receipt Date: 20110720
  Transmission Date: 20111222
  Serious: Yes (Death)
  Sender: FDA-Public Use
  Company Number: CA-ROCHE-790948

PATIENT
  Age: 30 Year
  Sex: Male

DRUGS (6)
  1. CLONAZEPAM [Suspect]
     Route: 048
  2. AMPHETAMINE SULFATE [Suspect]
     Route: 065
  3. CITALOPRAM HYDROBROMIDE [Suspect]
     Route: 048
  4. DIAZEPAM [Suspect]
     Route: 048
  5. METHAMPHETAMINE HYDROCHLORIDE [Suspect]
     Route: 065
  6. OXYCODONE HCL [Suspect]
     Route: 048

REACTIONS (4)
  - INTENTIONAL SELF-INJURY [None]
  - SUBSTANCE ABUSE [None]
  - COMPLETED SUICIDE [None]
  - INJURY [None]
